FAERS Safety Report 15349406 (Version 1)
Quarter: 2018Q3

REPORT INFORMATION
  Report Type: Report from Study
  Country: TH (occurrence: TH)
  Receive Date: 20180904
  Receipt Date: 20180904
  Transmission Date: 20181010
  Serious: Yes (Other)
  Sender: FDA-Public Use
  Company Number: TH-MYLANLABS-2018M1065034

PATIENT
  Age: 2 Decade
  Sex: Male

DRUGS (3)
  1. CISPLATIN. [Concomitant]
     Active Substance: CISPLATIN
     Indication: GERM CELL NEOPLASM
     Dosage: 20 MG/M2 ON DAY 1 TO 5; RECEIVED 3 CYCLES
     Route: 041
  2. ETOPOSIDE. [Suspect]
     Active Substance: ETOPOSIDE
     Indication: GERM CELL NEOPLASM
     Dosage: 100 MG/M2 ON DAY 1 TO 5; RECEIVED 3 CYCLES
     Route: 041
  3. BLEOMYCIN [Concomitant]
     Active Substance: BLEOMYCIN SULFATE
     Indication: GERM CELL NEOPLASM
     Dosage: 15 UNITS/M2 ON DAY 1; RECEIVED 3 CYCLES
     Route: 041

REACTIONS (1)
  - Chloroma [Recovered/Resolved]
